FAERS Safety Report 4488869-6 (Version None)
Quarter: 2004Q4

REPORT INFORMATION
  Report Type: 
  Country: None (occurrence: None)
  Receive Date: 20041029
  Receipt Date: 20041011
  Transmission Date: 20050328
  Serious: Yes (Life-Threatening, Hospitalization)
  Sender: FDA-Public Use
  Company Number: US-MERCK-0410USA01539

PATIENT
  Age: 38 Year
  Sex: Male

DRUGS (3)
  1. VIOXX [Suspect]
     Indication: MONARTHRITIS
     Route: 048
     Dates: start: 20040518, end: 20040701
  2. VIOXX [Suspect]
     Route: 048
     Dates: start: 20040315
  3. PREVACID [Concomitant]
     Indication: STOMACH DISCOMFORT
     Route: 065
     Dates: start: 20040315

REACTIONS (6)
  - CHEST PAIN [None]
  - CORONARY ARTERY OCCLUSION [None]
  - DYSPNOEA [None]
  - ELECTROCARDIOGRAM ABNORMAL [None]
  - FEELING ABNORMAL [None]
  - OEDEMA PERIPHERAL [None]
